FAERS Safety Report 25444971 (Version 2)
Quarter: 2025Q2

REPORT INFORMATION
  Report Type: Spontaneous
  Country: GB (occurrence: GB)
  Receive Date: 20250617
  Receipt Date: 20250626
  Transmission Date: 20250717
  Serious: Yes (Other)
  Sender: BAXTER
  Company Number: None

PATIENT
  Age: 71 Year

DRUGS (2)
  1. DOXORUBICIN [Suspect]
     Active Substance: DOXORUBICIN
     Route: 065
  2. GEMCITABINE [Suspect]
     Active Substance: GEMCITABINE
     Route: 065

REACTIONS (9)
  - Hepatic function abnormal [Not Recovered/Not Resolved]
  - Metastasis [Unknown]
  - Cardiotoxicity [Unknown]
  - Diastolic dysfunction [Unknown]
  - Fluid retention [Unknown]
  - Blood osmolarity decreased [Unknown]
  - Oedema peripheral [Not Recovered/Not Resolved]
  - Mobility decreased [Unknown]
  - Product administration error [Unknown]

NARRATIVE: CASE EVENT DATE: 20250507
